FAERS Safety Report 9587354 (Version 1)
Quarter: 2013Q4

REPORT INFORMATION
  Report Type: Spontaneous
  Country: US (occurrence: None)
  Receive Date: 20131003
  Receipt Date: 20131003
  Transmission Date: 20140711
  Serious: Yes (Other)
  Sender: FDA-Public Use
  Company Number: None

PATIENT
  Age: 66 Year
  Sex: Male
  Weight: 72.58 kg

DRUGS (1)
  1. ZOLPIDEM TARTRATE [Suspect]
     Indication: INSOMNIA
     Dosage: 1 AT BEDTIME TAKEN BY MOUTH
     Route: 048
     Dates: start: 20130930, end: 20131001

REACTIONS (7)
  - Urticaria [None]
  - Swollen tongue [None]
  - Product substitution issue [None]
  - Pharyngeal oedema [None]
  - Lip swelling [None]
  - Insomnia [None]
  - Vomiting [None]
